FAERS Safety Report 6908050-8 (Version None)
Quarter: 2010Q3

REPORT INFORMATION
  Report Type: 
  Country: None (occurrence: None)
  Receive Date: 20100805
  Receipt Date: 20100728
  Transmission Date: 20110219
  Serious: Yes (Death, Other)
  Sender: FDA-Public Use
  Company Number: US-PURDUE-USA-2010-0045328

PATIENT
  Sex: Male

DRUGS (1)
  1. OXYCONTIN [Suspect]
     Indication: DRUG ABUSE
     Dosage: 160 MG, SEE TEXT

REACTIONS (3)
  - DRUG ABUSE [None]
  - OVERDOSE [None]
  - ROAD TRAFFIC ACCIDENT [None]
